FAERS Safety Report 7924288-5 (Version None)
Quarter: 2011Q4

REPORT INFORMATION
  Report Type: 
  Country: None (occurrence: None)
  Receive Date: 20111117
  Receipt Date: 20110321
  Transmission Date: 20120403
  Serious: No
  Sender: FDA-Public Use
  Company Number: US-AMGEN-USASP2011015201

PATIENT
  Age: 55 Year

DRUGS (13)
  1. METHOTREXATE [Concomitant]
     Dosage: 2.5 MG, UNK
  2. VITAMIN C                          /00008001/ [Concomitant]
     Dosage: 500 UNK, UNK
  3. TOPROL-XL [Concomitant]
     Dosage: 50 MG, UNK
  4. FISH OIL [Concomitant]
  5. BENICAR [Concomitant]
     Dosage: 20 MG, UNK
  6. CENTRUM SILVER                     /01292501/ [Concomitant]
  7. PLAQUENIL [Concomitant]
     Dosage: 200 UNK, UNK
  8. NAPROXEN (ALEVE) [Concomitant]
     Dosage: 220 MG, UNK
  9. SIMVASTATIN [Concomitant]
     Dosage: 20 MG, UNK
  10. ENBREL [Suspect]
     Indication: PRODUCT USED FOR UNKNOWN INDICATION
     Dosage: 50 MG, QWK
  11. ASPIRIN [Concomitant]
     Dosage: 81 MG, UNK
  12. ISOSORB                            /00586302/ [Concomitant]
     Dosage: 2.5 MG, UNK
  13. FOLIC ACID [Concomitant]
     Dosage: 5 MG, UNK

REACTIONS (5)
  - OROPHARYNGEAL PAIN [None]
  - RHINORRHOEA [None]
  - NASAL CONGESTION [None]
  - COUGH [None]
  - BACK PAIN [None]
